FAERS Safety Report 6580515-0 (Version None)
Quarter: 2010Q1

REPORT INFORMATION
  Report Type: 
  Country: None (occurrence: None)
  Receive Date: 20100212
  Receipt Date: 20091008
  Transmission Date: 20100710
  Serious: Yes (Life-Threatening)
  Sender: FDA-Public Use
  Company Number: FR-WYE-H13477810

PATIENT
  Age: 71 Year
  Sex: Male

DRUGS (4)
  1. CORDARONE [Suspect]
     Indication: ATRIAL FIBRILLATION
     Dosage: LOADING DOSE OF 1000 MG; THEN DOSE TO 200 MG (FREQUENCY NOT SPECIFIED)
     Route: 065
     Dates: start: 20080903
  2. KARDEGIC [Suspect]
     Indication: ISCHAEMIC STROKE
     Dosage: DOSE AND FREQUENCY NOT SPECIFIED
     Route: 065
     Dates: start: 20080901
  3. PREVISCAN [Suspect]
     Indication: ISCHAEMIC STROKE
     Dosage: 10 MG DAILY (DISCONTINUED ON 05-SEP-2008); THEN RESTARTED ON AN UNKNOWN DATE
     Route: 048
     Dates: start: 20080903
  4. HEPARIN [Suspect]
     Indication: ISCHAEMIC STROKE
     Route: 042
     Dates: start: 20080902, end: 20080906

REACTIONS (1)
  - MUSCLE HAEMORRHAGE [None]
